FAERS Safety Report 14921962 (Version 2)
Quarter: 2018Q2

REPORT INFORMATION
  Report Type: Spontaneous
  Country: MX (occurrence: MX)
  Receive Date: 20180522
  Receipt Date: 20180609
  Transmission Date: 20180711
  Serious: Yes (Hospitalization)
  Sender: FDA-Public Use
  Company Number: MX-TEVA-2018-MX-891926

PATIENT
  Age: 59 Year
  Sex: Male

DRUGS (2)
  1. HYDROCORTISONE. [Concomitant]
     Active Substance: HYDROCORTISONE
     Indication: ASTHMA
     Route: 042
  2. SALBUTAMOL W/IPRATROPIUM [Suspect]
     Active Substance: ALBUTEROL\IPRATROPIUM
     Indication: ASTHMA
     Dosage: IPRATROPIUM BROMIDE/SALBUTAMOL SULFATE: 0.5MG/32.5MG; 3-4 PUFFS PER DAY, THROUGH A MOUTH PIECE; F...
     Route: 055

REACTIONS (2)
  - Atrial fibrillation [Recovered/Resolved]
  - Lactic acidosis [Recovered/Resolved]
